FAERS Safety Report 12748262 (Version 3)
Quarter: 2016Q4

REPORT INFORMATION
  Report Type: Spontaneous
  Country: US (occurrence: US)
  Receive Date: 20160915
  Receipt Date: 20161104
  Transmission Date: 20170207
  Serious: Yes (Hospitalization, Other)
  Sender: FDA-Public Use
  Company Number: US-PFIZER INC-2016431729

PATIENT
  Age: 74 Year
  Sex: Female
  Weight: 58.97 kg

DRUGS (4)
  1. REVATIO [Suspect]
     Active Substance: SILDENAFIL CITRATE
     Indication: DYSPNOEA
  2. REVATIO [Suspect]
     Active Substance: SILDENAFIL CITRATE
     Indication: LUNG DISORDER
     Dosage: 20 MG, 3X/DAY (ONE IN THE MORNING, ONE IN MID-DAY AND ONE AT BEDTIME)
     Route: 048
     Dates: start: 2000
  3. REVATIO [Suspect]
     Active Substance: SILDENAFIL CITRATE
     Indication: DYSPNOEA
  4. THOMASIN [Concomitant]
     Dosage: UNK

REACTIONS (8)
  - Haemorrhoidal haemorrhage [Recovered/Resolved]
  - Cardiac disorder [Recovered/Resolved]
  - Chest pain [Recovered/Resolved]
  - Blood disorder [Recovered/Resolved]
  - Angina pectoris [Recovered/Resolved]
  - Ejection fraction decreased [Recovered/Resolved]
  - Asthenia [Recovered/Resolved]
  - Dyspnoea [Unknown]

NARRATIVE: CASE EVENT DATE: 2016
